FAERS Safety Report 6263062-5 (Version None)
Quarter: 2009Q3

REPORT INFORMATION
  Report Type: 
  Country: None (occurrence: None)
  Receive Date: 20090710
  Receipt Date: 20090629
  Transmission Date: 20100115
  Serious: Yes (Other)
  Sender: FDA-Public Use
  Company Number: TR-RANBAXY-2009RR-24819

PATIENT
  Age: 6 Year
  Sex: Female

DRUGS (2)
  1. PARACETAMOL [Suspect]
     Indication: BONE PAIN
     Dosage: 250 MG, UNK
  2. NEUPOGEN [Suspect]
     Dosage: 10 UG/KG, QD
     Route: 058

REACTIONS (1)
  - RHABDOMYOLYSIS [None]
